FAERS Safety Report 8874866 (Version 1)
Quarter: 2012Q4

REPORT INFORMATION
  Report Type: 
  Country: GB (occurrence: GB)
  Receive Date: 20121030
  Receipt Date: 20121030
  Transmission Date: 20130627
  Serious: Yes (Disabling)
  Sender: FDA-Public Use
  Company Number: GB-TEVA-365764ISR

PATIENT
  Age: 80 Year
  Sex: Female

DRUGS (9)
  1. WARFARIN [Suspect]
     Indication: THROMBOSIS PROPHYLAXIS
     Dosage: According to International Normalised Ratio
     Route: 048
  2. TRAMADOL [Concomitant]
     Indication: PAIN
     Dosage: 50-100mg 4 times a day as needed
     Route: 048
  3. OMEPRAZOLE [Concomitant]
     Indication: DYSPEPSIA
     Dosage: 10 Milligram Daily;
     Route: 048
  4. DOXAZOSIN [Concomitant]
     Indication: ESSENTIAL HYPERTENSION
     Dosage: 2 Milligram Daily;
     Route: 048
  5. ALENDRONIC ACID [Concomitant]
     Indication: OSTEOPOROSIS
     Route: 048
  6. CALCEOS [Concomitant]
     Indication: OSTEOPOROSIS
     Dosage: 2 Dosage forms Daily; Galen Ltd
     Route: 048
  7. HYPROMELLOSE [Concomitant]
     Indication: DRY EYE
  8. PARACETAMOL [Concomitant]
     Indication: PAIN
     Dosage: 500mg-1g four times a day as needed
     Route: 048
  9. DALTEPARIN [Concomitant]

REACTIONS (4)
  - Dizziness [Recovered/Resolved]
  - Memory impairment [Recovered/Resolved]
  - Aphasia [Recovered/Resolved]
  - Headache [Recovered/Resolved]
